FAERS Safety Report 25340753 (Version 3)
Quarter: 2025Q4

REPORT INFORMATION
  Report Type: Report from Study
  Country: CO (occurrence: CO)
  Receive Date: 20250521
  Receipt Date: 20251120
  Transmission Date: 20260118
  Serious: Yes (Hospitalization)
  Sender: ABBVIE
  Company Number: CO-JNJFOC-20250511993

PATIENT
  Age: 67 Year
  Sex: Male
  Weight: 53 kg

DRUGS (5)
  1. IMBRUVICA [Suspect]
     Active Substance: IBRUTINIB
     Indication: Mantle cell lymphoma
     Route: 048
     Dates: end: 20251021
  2. IMBRUVICA [Suspect]
     Active Substance: IBRUTINIB
     Indication: Mantle cell lymphoma
     Route: 048
     Dates: start: 20240424
  3. ACYCLOVIR [Concomitant]
     Active Substance: ACYCLOVIR
     Indication: Product used for unknown indication
  4. RITUXIMAB [Concomitant]
     Active Substance: RITUXIMAB
     Indication: Product used for unknown indication
  5. ACETAMINOPHEN [Concomitant]
     Active Substance: ACETAMINOPHEN
     Indication: Product used for unknown indication

REACTIONS (7)
  - Blood pressure decreased [Unknown]
  - Weight decreased [Unknown]
  - Decreased appetite [Unknown]
  - Diarrhoea [Unknown]
  - Vomiting [Not Recovered/Not Resolved]
  - General physical health deterioration [Unknown]
  - Malnutrition [Unknown]

NARRATIVE: CASE EVENT DATE: 20250419
